FAERS Safety Report 7239778-0 (Version None)
Quarter: 2011Q1

REPORT INFORMATION
  Report Type: 
  Country: None (occurrence: None)
  Receive Date: 20110122
  Receipt Date: 20101110
  Transmission Date: 20110831
  Serious: No
  Sender: FDA-Public Use
  Company Number: US-ALLERGAN-1014560US

PATIENT
  Age: 52 Year
  Sex: Female

DRUGS (1)
  1. LATISSE [Suspect]
     Indication: GROWTH OF EYELASHES
     Dosage: 1 GTT, BI-WEEKLY
     Route: 061
     Dates: start: 20100701

REACTIONS (2)
  - ERYTHEMA OF EYELID [None]
  - INAPPROPRIATE SCHEDULE OF DRUG ADMINISTRATION [None]
